FAERS Safety Report 16403809 (Version 1)
Quarter: 2019Q2

REPORT INFORMATION
  Report Type: Spontaneous
  Country: PL (occurrence: PL)
  Receive Date: 20190607
  Receipt Date: 20190607
  Transmission Date: 20190711
  Serious: Yes (Hospitalization, Other)
  Sender: FDA-Public Use
  Company Number: PL-GLAXOSMITHKLINE-PL2019GSK099413

PATIENT
  Age: 18 Year
  Sex: Female
  Weight: 40 kg

DRUGS (1)
  1. LAMITRIN [Suspect]
     Active Substance: LAMOTRIGINE
     Indication: PRODUCT USED FOR UNKNOWN INDICATION
     Dosage: 75 MG, 24D
     Route: 048
     Dates: start: 201904

REACTIONS (7)
  - Drug reaction with eosinophilia and systemic symptoms [Recovering/Resolving]
  - Dermatitis [Recovering/Resolving]
  - Lymphocyte count abnormal [Recovering/Resolving]
  - Leukocytosis [Recovering/Resolving]
  - Eosinophilia [Recovering/Resolving]
  - Hepatic enzyme increased [Recovering/Resolving]
  - Lymphadenopathy [Recovering/Resolving]

NARRATIVE: CASE EVENT DATE: 20190510
